FAERS Safety Report 10814389 (Version 1)
Quarter: 2015Q1

REPORT INFORMATION
  Report Type: Report from Study
  Country: US (occurrence: US)
  Receive Date: 20150218
  Receipt Date: 20150218
  Transmission Date: 20150721
  Serious: No
  Sender: FDA-Public Use
  Company Number: US-ABBVIE-14K-163-1276927-00

PATIENT
  Age: 31 Year
  Sex: Male

DRUGS (3)
  1. MULTIVITAMIN [Concomitant]
     Active Substance: VITAMINS
     Indication: PRODUCT USED FOR UNKNOWN INDICATION
  2. HUMIRA [Suspect]
     Active Substance: ADALIMUMAB
     Indication: ANKYLOSING SPONDYLITIS
     Dates: start: 201308
  3. HUMIRA [Suspect]
     Active Substance: ADALIMUMAB
     Dates: start: 2014

REACTIONS (6)
  - Arthralgia [Not Recovered/Not Resolved]
  - Feeling abnormal [Unknown]
  - Incorrect product storage [Unknown]
  - Poor quality drug administered [Unknown]
  - Dizziness [Recovering/Resolving]
  - Drug ineffective [Not Recovered/Not Resolved]

NARRATIVE: CASE EVENT DATE: 201402
